FAERS Safety Report 25664784 (Version 1)
Quarter: 2025Q3

REPORT INFORMATION
  Report Type: Spontaneous
  Country: US (occurrence: US)
  Receive Date: 20250811
  Receipt Date: 20250811
  Transmission Date: 20251020
  Serious: No
  Sender: Day One Biopharmaceuticals
  Company Number: US-Day One Biopharmaceuticals Inc.-2025US001165

PATIENT

DRUGS (2)
  1. TOVORAFENIB [Suspect]
     Active Substance: TOVORAFENIB
     Indication: Astrocytoma
     Dosage: 600 MG, QW (DURATION OF TOVORAFENIB -  M ONTHS)
     Route: 065
  2. UNSPECIFIED INGREDIENT [Concomitant]
     Active Substance: UNSPECIFIED INGREDIENT
     Indication: Back pain
     Route: 065

REACTIONS (2)
  - Off label use [Unknown]
  - Disease progression [Unknown]
